FAERS Safety Report 20954338 (Version 1)
Quarter: 2022Q2

REPORT INFORMATION
  Report Type: Spontaneous
  Country: US (occurrence: US)
  Receive Date: 20220614
  Receipt Date: 20220614
  Transmission Date: 20220721
  Serious: No
  Sender: FDA-Public Use
  Company Number: US-BRISTOL-MYERS SQUIBB COMPANY-2022-044444

PATIENT
  Age: 64 Year
  Sex: Male

DRUGS (1)
  1. OPDIVO [Suspect]
     Active Substance: NIVOLUMAB
     Indication: Malignant melanoma
     Dosage: 480 MG IN 100 ML INFUSION BAG.  FREQ : ONCE A MONTH
     Dates: start: 202004

REACTIONS (2)
  - Sunburn [Unknown]
  - Blister [Unknown]

NARRATIVE: CASE EVENT DATE: 20210101
